FAERS Safety Report 8411053-8 (Version None)
Quarter: 2012Q2

REPORT INFORMATION
  Report Type: 
  Country: None (occurrence: None)
  Receive Date: 20120605
  Receipt Date: 20120501
  Transmission Date: 20120825
  Serious: No
  Sender: FDA-Public Use
  Company Number: US-AMGEN-USASP2012027407

PATIENT
  Age: 62 Year
  Sex: Female

DRUGS (3)
  1. ENBREL [Suspect]
     Indication: PSORIATIC ARTHROPATHY
     Dates: start: 20120429
  2. ENBREL [Suspect]
     Indication: RHEUMATOID ARTHRITIS
  3. ENBREL [Suspect]
     Indication: PSORIASIS

REACTIONS (13)
  - INSOMNIA [None]
  - PAIN IN EXTREMITY [None]
  - DIZZINESS [None]
  - TREMOR [None]
  - WRONG TECHNIQUE IN DRUG USAGE PROCESS [None]
  - FEELING ABNORMAL [None]
  - INGROWING NAIL [None]
  - GAIT DISTURBANCE [None]
  - NERVOUSNESS [None]
  - RHEUMATOID ARTHRITIS [None]
  - FATIGUE [None]
  - PSORIASIS [None]
  - HYPOAESTHESIA [None]
